FAERS Safety Report 8141823-5 (Version None)
Quarter: 2012Q1

REPORT INFORMATION
  Report Type: 
  Country: None (occurrence: None)
  Receive Date: 20120216
  Receipt Date: 20120206
  Transmission Date: 20120608
  Serious: Yes (Other)
  Sender: FDA-Public Use
  Company Number: CA-ELI_LILLY_AND_COMPANY-CA201202001996

PATIENT
  Sex: Male

DRUGS (3)
  1. ALIMTA [Suspect]
     Indication: NON-SMALL CELL LUNG CANCER
     Dosage: 500 MG/M2, UNKNOWN
  2. ETOPOSIDE [Concomitant]
     Dosage: UNK, UNKNOWN
  3. CISPLATIN [Concomitant]
     Dosage: UNK, UNKNOWN

REACTIONS (1)
  - MYELOFIBROSIS [None]
